FAERS Safety Report 12153538 (Version 4)
Quarter: 2016Q3

REPORT INFORMATION
  Report Type: Report from Study
  Country: US (occurrence: US)
  Receive Date: 20160306
  Receipt Date: 20160711
  Transmission Date: 20161109
  Serious: Yes (Hospitalization, Other)
  Sender: FDA-Public Use
  Company Number: PHEH2016US004555

PATIENT
  Age: 74 Year
  Sex: Male
  Weight: 83.9 kg

DRUGS (1)
  1. ENTRESTO [Suspect]
     Active Substance: SACUBITRIL\VALSARTAN
     Indication: CARDIAC FAILURE CHRONIC
     Dosage: 100 MG (49/51), BID
     Route: 048
     Dates: start: 201508

REACTIONS (6)
  - Cardiac failure [Recovered/Resolved with Sequelae]
  - Fatigue [Unknown]
  - International normalised ratio fluctuation [Unknown]
  - Coronary artery occlusion [Recovered/Resolved]
  - Fluid retention [Unknown]
  - Dyspnoea [Unknown]

NARRATIVE: CASE EVENT DATE: 20151230
